FAERS Safety Report 5420757-0 (Version None)
Quarter: 2007Q3

REPORT INFORMATION
  Report Type: 
  Country: None (occurrence: None)
  Receive Date: 20070821
  Receipt Date: 20070307
  Transmission Date: 20080115
  Serious: Yes (Other)
  Sender: FDA-Public Use
  Company Number: US-BRISTOL-MYERS SQUIBB COMPANY-13706445

PATIENT
  Sex: Female

DRUGS (3)
  1. ESTRACE [Suspect]
     Indication: HORMONE REPLACEMENT THERAPY
     Route: 048
     Dates: start: 19980101, end: 20030101
  2. PROVERA [Suspect]
     Indication: HORMONE REPLACEMENT THERAPY
     Dates: start: 19980101, end: 20030101
  3. ACTIVELLA [Suspect]
     Indication: HORMONE REPLACEMENT THERAPY
     Dates: start: 19980101, end: 20030101

REACTIONS (1)
  - BREAST CANCER [None]
